FAERS Safety Report 25124407 (Version 1)
Quarter: 2025Q1

REPORT INFORMATION
  Report Type: Spontaneous
  Country: GB (occurrence: GB)
  Receive Date: 20250326
  Receipt Date: 20250326
  Transmission Date: 20250409
  Serious: Yes (Disabling, Other)
  Sender: ETHYPHARM
  Company Number: None

PATIENT

DRUGS (1)
  1. BUPRENORPHINE HYDROCHLORIDE [Suspect]
     Active Substance: BUPRENORPHINE HYDROCHLORIDE
     Dates: start: 20250310, end: 20250317

REACTIONS (3)
  - Insomnia [Recovering/Resolving]
  - Hallucination [Recovering/Resolving]
  - Disorientation [Recovering/Resolving]

NARRATIVE: CASE EVENT DATE: 20250310
